FAERS Safety Report 8775020 (Version 2)
Quarter: 2012Q4

REPORT INFORMATION
  Report Type: 
  Country: US (occurrence: US)
  Receive Date: 20120910
  Receipt Date: 20121121
  Transmission Date: 20130627
  Serious: Yes (Hospitalization)
  Sender: FDA-Public Use
  Company Number: US-CELGENEUS-163-21880-12090330

PATIENT
  Sex: Male

DRUGS (7)
  1. REVLIMID [Suspect]
     Indication: MULTIPLE MYELOMA
     Dosage: 15 Milligram
     Route: 048
     Dates: start: 20080728
  2. REVLIMID [Suspect]
     Dosage: 10 Milligram
     Route: 048
     Dates: start: 200810, end: 200812
  3. REVLIMID [Suspect]
     Dosage: 15 Milligram
     Route: 048
     Dates: start: 200901, end: 201201
  4. REVLIMID [Suspect]
     Dosage: 25 Milligram
     Route: 048
     Dates: start: 201202, end: 201205
  5. REVLIMID [Suspect]
     Dosage: 15 Milligram
     Route: 048
     Dates: start: 201206, end: 20120831
  6. REVLIMID [Suspect]
     Dosage: 10 Milligram
     Route: 048
     Dates: start: 20120907
  7. DEXAMETHASONE [Concomitant]
     Indication: DRUG USE FOR UNKNOWN INDICATION
     Dosage: 40 Milligram
     Route: 065
     Dates: start: 200807

REACTIONS (1)
  - Renal failure [Not Recovered/Not Resolved]
